FAERS Safety Report 7018331-8 (Version None)
Quarter: 2010Q3

REPORT INFORMATION
  Report Type: 
  Country: None (occurrence: None)
  Receive Date: 20100923
  Receipt Date: 20100910
  Transmission Date: 20110219
  Serious: Yes (Other)
  Sender: FDA-Public Use
  Company Number: FR-2010-1964

PATIENT
  Sex: Female

DRUGS (4)
  1. NAVELBINE [Suspect]
     Indication: HODGKIN'S DISEASE
     Dosage: 14 MG IV
     Route: 042
     Dates: start: 20100317
  2. NAVELBINE [Suspect]
     Indication: HODGKIN'S DISEASE
     Dates: start: 20100412
  3. GEMZAR [Suspect]
     Indication: HODGKIN'S DISEASE
     Dosage: 720 MG IV
     Route: 042
  4. CAELYX. MFR: NOT SPECIFIED [Suspect]
     Indication: HODGKIN'S DISEASE
     Dosage: 14 MG IV
     Route: 042

REACTIONS (4)
  - MYALGIA [None]
  - PANCYTOPENIA [None]
  - RASH PAPULAR [None]
  - VISUAL IMPAIRMENT [None]
